FAERS Safety Report 5036322-3 (Version None)
Quarter: 2006Q2

REPORT INFORMATION
  Report Type: 
  Country: None (occurrence: None)
  Receive Date: 20060601
  Receipt Date: 20060426
  Transmission Date: 20061013
  Serious: No
  Sender: FDA-Public Use
  Company Number: US200604004522

PATIENT
  Age: 45 Year
  Sex: Male

DRUGS (3)
  1. CYMBALTA [Suspect]
     Indication: DEPRESSION
     Dosage: 30 MG, EACH EVENING, ORAL
     Route: 048
  2. LAMICTAL [Concomitant]
  3. WELLBUTRIN [Concomitant]

REACTIONS (2)
  - INSOMNIA [None]
  - TREMOR [None]
